FAERS Safety Report 22231236 (Version 2)
Quarter: 2023Q2

REPORT INFORMATION
  Report Type: Spontaneous
  Country: JP (occurrence: JP)
  Receive Date: 20230420
  Receipt Date: 20230531
  Transmission Date: 20230721
  Serious: Yes (Hospitalization, Other)
  Sender: FDA-Public Use
  Company Number: JP-NOVOPROD-1052237

PATIENT
  Age: 2 Decade
  Sex: Female

DRUGS (6)
  1. INSULIN GLARGINE [Suspect]
     Active Substance: INSULIN GLARGINE
     Dosage: RESUMED (DOSAGE AND UNITS NOT REPORTED)
     Route: 058
  2. INSULIN GLARGINE [Suspect]
     Active Substance: INSULIN GLARGINE
     Dosage: 1350IU
     Route: 058
  3. INSULIN GLARGINE [Suspect]
     Active Substance: INSULIN GLARGINE
     Indication: Type 1 diabetes mellitus
     Dosage: UNK
     Route: 058
  4. NOVORAPID [Suspect]
     Active Substance: INSULIN ASPART
     Indication: Type 1 diabetes mellitus
     Dosage: UNK
     Route: 058
  5. NOVORAPID [Suspect]
     Active Substance: INSULIN ASPART
     Dosage: 600IU
     Route: 058
  6. NOVORAPID [Suspect]
     Active Substance: INSULIN ASPART
     Dosage: RESUMED (DOSAGE AND UNITS NOT REPORTED)
     Route: 058

REACTIONS (3)
  - Suicide attempt [Recovered/Resolved]
  - Hypoglycaemia [Recovered/Resolved]
  - Intentional overdose [Unknown]
